FAERS Safety Report 9740719 (Version 1)
Quarter: 2013Q4

REPORT INFORMATION
  Report Type: Spontaneous
  Country: US (occurrence: US)
  Receive Date: 20131209
  Receipt Date: 20131209
  Transmission Date: 20140711
  Serious: No
  Sender: FDA-Public Use
  Company Number: US-BIOGENIDEC-2013BI100195

PATIENT
  Age: 53 Year
  Sex: Female

DRUGS (7)
  1. TECFIDERA [Suspect]
     Indication: MULTIPLE SCLEROSIS
     Route: 048
     Dates: start: 20130926
  2. CILOSTAZOL [Concomitant]
  3. CYANOCOBALAMIN [Concomitant]
  4. CYMBALTA [Concomitant]
  5. DIPHENOXYLATE-ATROPINE [Concomitant]
  6. FUROSEMIDE [Concomitant]
  7. MIRTAZAPINE [Concomitant]

REACTIONS (2)
  - Dyspnoea [Unknown]
  - Local swelling [Unknown]
